FAERS Safety Report 6938172-7 (Version None)
Quarter: 2010Q3

REPORT INFORMATION
  Report Type: 
  Country: None (occurrence: None)
  Receive Date: 20100817
  Receipt Date: 20100806
  Transmission Date: 20110219
  Serious: Yes (Hospitalization)
  Sender: FDA-Public Use
  Company Number: 7013342

PATIENT
  Age: 23 Year
  Sex: Female

DRUGS (2)
  1. LEVOTHYROXINE SODIUM [Suspect]
     Indication: HYPOTHYROIDISM
     Dosage: 25 MG (250 DF); 0.15 MG (0.15 MG, 1 IN 1 D)
     Dates: start: 20081017
  2. LEVOTHYROXINE SODIUM [Suspect]
     Indication: POST PROCEDURAL HYPOTHYROIDISM
     Dosage: 25 MG (250 DF); 0.15 MG (0.15 MG, 1 IN 1 D)
     Dates: start: 20081017

REACTIONS (2)
  - DRUG TOXICITY [None]
  - INTENTIONAL OVERDOSE [None]
